FAERS Safety Report 24740850 (Version 1)
Quarter: 2024Q4

REPORT INFORMATION
  Report Type: Spontaneous
  Country: US (occurrence: None)
  Receive Date: 20241217
  Receipt Date: 20241217
  Transmission Date: 20250115
  Serious: No
  Sender: SUPERNUS PHARMACEUTICALS, INC.
  Company Number: US-SUPERNUS Pharmaceuticals, Inc.-SUP202406-002295

PATIENT
  Sex: Female

DRUGS (2)
  1. TROKENDI XR [Suspect]
     Active Substance: TOPIRAMATE
     Indication: Product used for unknown indication
     Dosage: TOTAL 700 MG DAILY
  2. TROKENDI XR [Suspect]
     Active Substance: TOPIRAMATE
     Dosage: TOTAL 700 MG DAILY

REACTIONS (3)
  - Therapy non-responder [Unknown]
  - Product quality issue [Unknown]
  - Incorrect dose administered [Unknown]
